FAERS Safety Report 13101368 (Version 3)
Quarter: 2017Q1

REPORT INFORMATION
  Report Type: Spontaneous
  Country: JP (occurrence: JP)
  Receive Date: 20170110
  Receipt Date: 20170124
  Transmission Date: 20170428
  Serious: Yes (Other)
  Sender: FDA-Public Use
  Company Number: JP-GLAXOSMITHKLINE-JP2016JPN192212

PATIENT
  Age: 72 Year
  Sex: Female
  Weight: 42 kg

DRUGS (8)
  1. LIVALO [Concomitant]
     Active Substance: PITAVASTATIN CALCIUM
     Dosage: 1 MG, 1D
     Dates: start: 20151127
  2. PLAVIX [Concomitant]
     Active Substance: CLOPIDOGREL BISULFATE
     Dosage: 75 MG, 1D
     Dates: start: 20151127
  3. MICARDIS [Concomitant]
     Active Substance: TELMISARTAN
     Dosage: 20 MG, 1D
     Dates: start: 20151127
  4. LEXAPRO [Concomitant]
     Active Substance: ESCITALOPRAM OXALATE
     Dosage: UNK
     Dates: start: 201611
  5. MICOMBI [Concomitant]
     Active Substance: HYDROCHLOROTHIAZIDE\TELMISARTAN
     Dosage: UNK
  6. LAMICTAL [Suspect]
     Active Substance: LAMOTRIGINE
     Indication: EPILEPSY
     Dosage: 25 MG, QD
     Route: 048
     Dates: start: 20161107, end: 20161122
  7. LAMICTAL [Suspect]
     Active Substance: LAMOTRIGINE
     Dosage: 100 MG, QD
     Route: 048
     Dates: start: 20161207, end: 20161222
  8. LAMICTAL [Suspect]
     Active Substance: LAMOTRIGINE
     Dosage: 50 MG, QD
     Route: 048
     Dates: start: 20161123, end: 20161206

REACTIONS (8)
  - Lip swelling [Unknown]
  - Ocular hyperaemia [Unknown]
  - Erythema multiforme [Recovering/Resolving]
  - Pigmentation disorder [Not Recovered/Not Resolved]
  - Eczema [Recovering/Resolving]
  - Stevens-Johnson syndrome [Recovering/Resolving]
  - Lip erosion [Recovering/Resolving]
  - Toxic skin eruption [Recovering/Resolving]

NARRATIVE: CASE EVENT DATE: 20161218
